FAERS Safety Report 4342816-6 (Version None)
Quarter: 2004Q2

REPORT INFORMATION
  Report Type: 
  Country: None (occurrence: None)
  Receive Date: 20040416
  Receipt Date: 20040330
  Transmission Date: 20050107
  Serious: Yes (Hospitalization)
  Sender: FDA-Public Use
  Company Number: M2004.0262

PATIENT
  Age: 62 Year
  Sex: Female
  Weight: 50 kg

DRUGS (4)
  1. RIMACTANE [Suspect]
     Indication: PULMONARY TUBERCULOSIS
     Dates: start: 20020413
  2. ISONIAZID [Concomitant]
  3. ESANBUTOL [Concomitant]
  4. PYRAZINAMIDE [Concomitant]

REACTIONS (11)
  - ADRENAL GLAND TUBERCULOSIS [None]
  - ADRENAL INSUFFICIENCY [None]
  - CALCINOSIS [None]
  - DEPRESSED LEVEL OF CONSCIOUSNESS [None]
  - DIARRHOEA [None]
  - NAUSEA [None]
  - PYREXIA [None]
  - SCAN ADRENAL GLAND ABNORMAL [None]
  - SHOCK [None]
  - SOMNOLENCE [None]
  - SWELLING [None]
